FAERS Safety Report 8009924-X (Version None)
Quarter: 2011Q4

REPORT INFORMATION
  Report Type: 
  Country: None (occurrence: None)
  Receive Date: 20111228
  Receipt Date: 20111215
  Transmission Date: 20120403
  Serious: Yes (Other)
  Sender: FDA-Public Use
  Company Number: PHHY2011BE110229

PATIENT
  Age: 46 Year

DRUGS (1)
  1. TASIGNA [Suspect]
     Indication: ACUTE LYMPHOCYTIC LEUKAEMIA
     Dosage: 800 MG
     Dates: start: 20080801, end: 20110901

REACTIONS (3)
  - RESPIRATORY DISORDER [None]
  - RENAL FAILURE [None]
  - FLUID OVERLOAD [None]
